FAERS Safety Report 18856816 (Version 1)
Quarter: 2021Q1

REPORT INFORMATION
  Report Type: Spontaneous
  Country: FR (occurrence: FR)
  Receive Date: 20210207
  Receipt Date: 20210207
  Transmission Date: 20210420
  Serious: Yes (Other)
  Sender: FDA-Public Use
  Company Number: FR-SHILPA MEDICARE LIMITED-SML-FR-2021-00119

PATIENT
  Age: 72 Year
  Sex: Female

DRUGS (3)
  1. CAPECITABINA, UNKNOWN [Suspect]
     Active Substance: CAPECITABINE
     Indication: HER2 POSITIVE BREAST CANCER
     Dosage: 1000 MG/M2, BID
     Route: 048
     Dates: start: 20200826
  2. TRASTUZUMAB. [Suspect]
     Active Substance: TRASTUZUMAB
     Indication: HER2 POSITIVE BREAST CANCER
     Dosage: 600 MG, Q3WEEKS
     Route: 058
     Dates: start: 20200826
  3. TUCATINIB [Suspect]
     Active Substance: TUCATINIB
     Indication: HER2 POSITIVE BREAST CANCER
     Dosage: 300 MG, BID
     Route: 048
     Dates: start: 20200826

REACTIONS (1)
  - Hepatocellular injury [Unknown]
